FAERS Safety Report 13254999 (Version 1)
Quarter: 2017Q1

REPORT INFORMATION
  Report Type: Spontaneous
  Country: US (occurrence: US)
  Receive Date: 20170221
  Receipt Date: 20170221
  Transmission Date: 20170428
  Serious: Yes (Congenital Anomaly, Other)
  Sender: FDA-Public Use
  Company Number: PHEH2017US005049

PATIENT

DRUGS (2)
  1. ZOFRAN ODT [Suspect]
     Active Substance: ONDANSETRON HYDROCHLORIDE
     Indication: FOETAL EXPOSURE DURING PREGNANCY
     Route: 064
  2. ZOFRAN [Suspect]
     Active Substance: ONDANSETRON HYDROCHLORIDE
     Indication: FOETAL EXPOSURE DURING PREGNANCY
     Route: 064

REACTIONS (16)
  - Gastrointestinal malformation [Unknown]
  - Cardiovascular disorder [Unknown]
  - Foetal exposure during pregnancy [Unknown]
  - Injury [Unknown]
  - Heart disease congenital [Unknown]
  - Congenital anomaly [Unknown]
  - Limb malformation [Unknown]
  - Emotional distress [Unknown]
  - Craniofacial deformity [Unknown]
  - Congenital bladder anomaly [Unknown]
  - Respiratory tract malformation [Unknown]
  - Congenital central nervous system anomaly [Unknown]
  - Kidney malformation [Unknown]
  - Reproductive tract disorder [Unknown]
  - Premature baby [Unknown]
  - Pain [Unknown]
